FAERS Safety Report 17618938 (Version 8)
Quarter: 2021Q2

REPORT INFORMATION
  Report Type: Report from Study
  Country: US (occurrence: US)
  Receive Date: 20200403
  Receipt Date: 20210604
  Transmission Date: 20210716
  Serious: No
  Sender: FDA-Public Use
  Company Number: NVSC2020US086138

PATIENT
  Sex: Male

DRUGS (2)
  1. COSENTYX [Suspect]
     Active Substance: SECUKINUMAB
     Dosage: 300 MG, Q4W
     Route: 058
  2. COSENTYX [Suspect]
     Active Substance: SECUKINUMAB
     Indication: PSORIASIS
     Dosage: 300 MG, QW
     Route: 058
     Dates: start: 20200326

REACTIONS (8)
  - Drug ineffective [Unknown]
  - Dry skin [Unknown]
  - Therapeutic product effect decreased [Recovering/Resolving]
  - Rash [Unknown]
  - Psoriasis [Unknown]
  - Paraesthesia [Recovered/Resolved]
  - Injection site pain [Recovering/Resolving]
  - Skin discolouration [Not Recovered/Not Resolved]
